FAERS Safety Report 16526190 (Version 1)
Quarter: 2019Q3

REPORT INFORMATION
  Report Type: Report from Study
  Country: CA (occurrence: CA)
  Receive Date: 20190703
  Receipt Date: 20190703
  Transmission Date: 20191004
  Serious: Yes (Death, Hospitalization, Other)
  Sender: FDA-Public Use
  Company Number: CA-PFIZER INC-2019277671

PATIENT
  Age: 68 Year
  Sex: Male
  Weight: 105 kg

DRUGS (7)
  1. BEVACIZUMAB. [Suspect]
     Active Substance: BEVACIZUMAB
     Indication: COLORECTAL CANCER METASTATIC
     Dosage: 500 MG, CYCLIC [1 EVERY 2 WEEK(S)]
     Route: 042
  2. SYNTHROID [Concomitant]
     Active Substance: LEVOTHYROXINE SODIUM
     Dosage: UNK
  3. CALCIUM FOLINATE [Suspect]
     Active Substance: LEUCOVORIN CALCIUM
     Indication: COLORECTAL CANCER METASTATIC
     Dosage: UNK
     Route: 065
  4. BEVACIZUMAB. [Suspect]
     Active Substance: BEVACIZUMAB
     Dosage: 487.5 MG, CYCLIC [1 EVERY 2 WEEK(S)]
     Route: 042
  5. FLUOROURACIL. [Suspect]
     Active Substance: FLUOROURACIL
     Indication: COLORECTAL CANCER METASTATIC
     Dosage: UNK
     Route: 065
  6. IRINOTECAN HCL [Suspect]
     Active Substance: IRINOTECAN HYDROCHLORIDE
     Indication: COLORECTAL CANCER METASTATIC
     Dosage: UNK
     Route: 042
  7. VITAMIN B12 [Concomitant]
     Active Substance: CYANOCOBALAMIN
     Dosage: UNK

REACTIONS (15)
  - Decreased appetite [Fatal]
  - Oral candidiasis [Fatal]
  - Pain [Fatal]
  - Asthenia [Fatal]
  - Anaemia [Fatal]
  - Fatigue [Fatal]
  - Neoplasm progression [Fatal]
  - Lethargy [Fatal]
  - Diarrhoea [Fatal]
  - Localised infection [Fatal]
  - Weight decreased [Fatal]
  - Infection [Fatal]
  - Neutrophil count decreased [Fatal]
  - Osteoporotic fracture [Fatal]
  - Pneumonia [Fatal]
